FAERS Safety Report 9006771 (Version 4)
Quarter: 2013Q2

REPORT INFORMATION
  Report Type: Report from Study
  Country: JP (occurrence: JP)
  Receive Date: 20130110
  Receipt Date: 20130603
  Transmission Date: 20140414
  Serious: Yes (Death)
  Sender: FDA-Public Use
  Company Number: PHHY2013JP002293

PATIENT
  Age: 42 Year
  Sex: Male

DRUGS (24)
  1. LEPONEX / CLOZARIL [Suspect]
     Indication: SCHIZOPHRENIA, PARANOID TYPE
     Dosage: 12.5 MG, DAILY
     Route: 048
     Dates: start: 20120509, end: 20120509
  2. LEPONEX / CLOZARIL [Suspect]
     Dosage: 25 MG, DAILY
     Route: 048
     Dates: start: 20120510, end: 20120512
  3. LEPONEX / CLOZARIL [Suspect]
     Dosage: 50 MG, DAILY
     Route: 048
     Dates: start: 20120513, end: 20120515
  4. LEPONEX / CLOZARIL [Suspect]
     Dosage: 75 MG, DAILY
     Route: 048
     Dates: start: 20120516, end: 20120517
  5. LEPONEX / CLOZARIL [Suspect]
     Dosage: 100 MG, DAILY
     Route: 048
     Dates: start: 20120518, end: 20120519
  6. LEPONEX / CLOZARIL [Suspect]
     Dosage: 125 MG, DAILY
     Route: 048
     Dates: start: 20120520, end: 20120522
  7. LEPONEX / CLOZARIL [Suspect]
     Dosage: 150 MG, DAILY
     Route: 048
     Dates: start: 20120523, end: 20120525
  8. LEPONEX / CLOZARIL [Suspect]
     Dosage: 175 MG, DAILY
     Route: 048
     Dates: start: 20120526, end: 20120528
  9. LEPONEX / CLOZARIL [Suspect]
     Dosage: 200 MG, DAILY
     Route: 048
     Dates: start: 20120529, end: 20120619
  10. LEPONEX / CLOZARIL [Suspect]
     Dosage: 175 MG, DAILY
     Route: 048
     Dates: start: 20120620, end: 20120903
  11. LEPONEX / CLOZARIL [Suspect]
     Dosage: 150 MG, DAILY
     Route: 048
     Dates: start: 20120904, end: 20121008
  12. LEPONEX / CLOZARIL [Suspect]
     Dosage: 125 MG,DAILY
     Route: 048
     Dates: start: 20121009, end: 20121228
  13. LIMAS [Concomitant]
     Dosage: 1 G, UNK
     Route: 048
     Dates: start: 20120509, end: 20121228
  14. SENNOSIDE [Concomitant]
     Dosage: 24 MG, UNK
     Route: 048
     Dates: start: 20120509, end: 20121228
  15. NORVASC [Concomitant]
     Dosage: 5 MG, UNK
     Route: 048
     Dates: start: 20120509
  16. MEILAX [Concomitant]
     Dosage: 1 MG, UNK
     Route: 048
     Dates: start: 20121002
  17. MEILAX [Concomitant]
     Dosage: 2 MG, UNK
     Route: 048
  18. RISPERDAL [Concomitant]
     Indication: SCHIZOPHRENIA, PARANOID TYPE
     Dosage: 2 MG, UNK
     Route: 048
     Dates: start: 20120509
  19. RISPERDAL [Concomitant]
     Dosage: 1 MG, UNK
     Route: 048
     Dates: end: 20120516
  20. LULLAN [Concomitant]
     Indication: SCHIZOPHRENIA, PARANOID TYPE
     Dosage: 48 MG, UNK
     Route: 048
     Dates: start: 20120509
  21. LULLAN [Concomitant]
     Dosage: 40 MG, UNK
     Route: 048
  22. LULLAN [Concomitant]
     Dosage: 20 MG, UNK
     Route: 048
     Dates: end: 20120530
  23. SEDIEL [Concomitant]
     Dosage: 15 MG, UNK
     Route: 048
     Dates: start: 20120509, end: 20120606
  24. BENZALIN [Concomitant]
     Dosage: 10 MG, UNK
     Route: 048
     Dates: start: 20120509

REACTIONS (2)
  - Myocardial infarction [Fatal]
  - Dyskinesia [Recovered/Resolved]
